FAERS Safety Report 8070858-6 (Version None)
Quarter: 2012Q1

REPORT INFORMATION
  Report Type: 
  Country: None (occurrence: None)
  Receive Date: 20120125
  Receipt Date: 20120120
  Transmission Date: 20120608
  Serious: Yes (Other)
  Sender: FDA-Public Use
  Company Number: JP-GLAXOSMITHKLINE-B0776976A

PATIENT
  Age: 37 Year
  Sex: Female

DRUGS (4)
  1. PAXIL [Suspect]
     Indication: DEPRESSION
     Route: 048
  2. PAXIL [Suspect]
     Dosage: 10MG PER DAY
     Route: 048
  3. PAXIL [Suspect]
     Dosage: 40MG PER DAY
     Route: 048
  4. PAXIL [Suspect]
     Route: 048

REACTIONS (3)
  - ACTIVATION SYNDROME [None]
  - ELEVATED MOOD [None]
  - AGGRESSION [None]
